FAERS Safety Report 6535162-3 (Version None)
Quarter: 2010Q1

REPORT INFORMATION
  Report Type: 
  Country: None (occurrence: None)
  Receive Date: 20100113
  Receipt Date: 20100108
  Transmission Date: 20100710
  Serious: Yes (Hospitalization, Other)
  Sender: FDA-Public Use
  Company Number: US-ELI_LILLY_AND_COMPANY-US200912005805

PATIENT
  Age: 57 Year
  Sex: Female

DRUGS (8)
  1. HUMULIN R [Suspect]
     Indication: DIABETES MELLITUS
     Dosage: UNK, AS NEEDED
     Dates: start: 19960101
  2. HUMULIN R [Suspect]
     Dosage: UNK, AS NEEDED
     Dates: start: 19960101
  3. HUMULIN R [Suspect]
     Dosage: UNK, AS NEEDED
     Dates: start: 19960101
  4. HUMULIN R [Suspect]
     Dosage: UNK, AS NEEDED
     Dates: end: 20100108
  5. HUMALOG [Suspect]
     Indication: DIABETES MELLITUS
     Dates: start: 19960101
  6. HUMULIN 50/50 [Suspect]
     Indication: DIABETES MELLITUS
     Dates: start: 19960101
  7. NORVASC [Concomitant]
  8. LIBRIUM [Concomitant]

REACTIONS (35)
  - ASTHENIA [None]
  - BLOOD GLUCOSE DECREASED [None]
  - BLOOD GLUCOSE INCREASED [None]
  - BREATH ODOUR [None]
  - CHEST PAIN [None]
  - CHILLS [None]
  - CONFUSIONAL STATE [None]
  - CORONARY ARTERY BYPASS [None]
  - DRUG HYPERSENSITIVITY [None]
  - DRUG INEFFECTIVE [None]
  - EYE MOVEMENT DISORDER [None]
  - FEAR [None]
  - FLUSHING [None]
  - GALLBLADDER OPERATION [None]
  - GASTRIC CANCER [None]
  - HEADACHE [None]
  - HUNGER [None]
  - INJECTION SITE DISCOLOURATION [None]
  - INJECTION SITE PRURITUS [None]
  - INJECTION SITE URTICARIA [None]
  - LIP SWELLING [None]
  - MALAISE [None]
  - MEMORY IMPAIRMENT [None]
  - MUSCULOSKELETAL STIFFNESS [None]
  - PAIN [None]
  - PAIN IN EXTREMITY [None]
  - POLLAKIURIA [None]
  - POOR QUALITY DRUG ADMINISTERED [None]
  - RASH [None]
  - SWOLLEN TONGUE [None]
  - TACHYPNOEA [None]
  - TREMOR [None]
  - VISION BLURRED [None]
  - VISUAL IMPAIRMENT [None]
  - WHITE BLOOD CELL COUNT INCREASED [None]
